FAERS Safety Report 4494939-9 (Version None)
Quarter: 2004Q4

REPORT INFORMATION
  Report Type: 
  Country: None (occurrence: None)
  Receive Date: 20041104
  Receipt Date: 20041104
  Transmission Date: 20050328
  Serious: Yes (Life-Threatening)
  Sender: FDA-Public Use
  Company Number: None

PATIENT
  Age: 56 Year
  Sex: Female
  Weight: 72.5755 kg

DRUGS (1)
  1. VIOXX [Suspect]
     Indication: FIBROMYALGIA
     Dosage: ONE A DAY 25 MG
     Dates: start: 19990101, end: 20040101

REACTIONS (5)
  - ANXIETY [None]
  - FEAR [None]
  - HEADACHE [None]
  - NECK PAIN [None]
  - PALPITATIONS [None]
